FAERS Safety Report 5697731-2 (Version None)
Quarter: 2008Q2

REPORT INFORMATION
  Report Type: 
  Country: None (occurrence: None)
  Receive Date: 20080408
  Receipt Date: 20080403
  Transmission Date: 20081010
  Serious: Yes (Other)
  Sender: FDA-Public Use
  Company Number: B0515487A

PATIENT
  Sex: Female

DRUGS (2)
  1. IMIGRAN [Suspect]
     Indication: MIGRAINE
     Dosage: 100MG PER DAY
     Route: 065
  2. TREO [Concomitant]
     Indication: MIGRAINE
     Dosage: 6TAB PER DAY

REACTIONS (1)
  - VITREOUS DETACHMENT [None]
